FAERS Safety Report 5920333-7 (Version None)
Quarter: 2008Q4

REPORT INFORMATION
  Report Type: 
  Country: None (occurrence: None)
  Receive Date: 20081016
  Receipt Date: 20081007
  Transmission Date: 20090506
  Serious: Yes (Hospitalization)
  Sender: FDA-Public Use
  Company Number: PHHY2008FR24209

PATIENT
  Sex: Female

DRUGS (15)
  1. COTAREG [Suspect]
     Indication: HYPERTENSION
     Dosage: 2 DF, QD
     Dates: end: 20080911
  2. ESOMEPRAZOLE MAGNESIUM [Suspect]
     Indication: PROPHYLAXIS
     Dosage: 20 MG 2 DF 1/DAY
     Dates: end: 20080911
  3. LASIX [Suspect]
     Dosage: 20 MG 1 TABLET/DAY
     Dates: end: 20080911
  4. LASIX [Suspect]
     Dosage: 20 MG 1 TABLET/DAY
  5. EFFEXOR [Suspect]
     Indication: DEPRESSION
     Dosage: 150 MG, 1 CAPSULE/DAY
     Dates: start: 20080820, end: 20080911
  6. INDOCIN [Concomitant]
     Dosage: 100, 2 SUPPOSITORIES/DAY
  7. OXYCONTIN [Concomitant]
     Dosage: 2 CAPSULES (10 MG) PER DAY
  8. CALCIDOSE VITAMINE D [Concomitant]
  9. STRONTIUM RANELATE [Concomitant]
     Dosage: 1 DF PER DAY
  10. DOLIPRANE [Concomitant]
     Dosage: 4 G/DAY
  11. CORTANCYL [Concomitant]
     Dosage: 12 MG/DAY
  12. ADANCOR [Concomitant]
     Dosage: 1 DF, BID
  13. AMLOD [Concomitant]
     Dosage: 1 DF/DAY
  14. ZOCOR [Concomitant]
  15. XANAX [Concomitant]

REACTIONS (5)
  - C-REACTIVE PROTEIN INCREASED [None]
  - CARDIAC FAILURE [None]
  - HYPONATRAEMIA [None]
  - RENAL FAILURE [None]
  - STAPHYLOCOCCAL SEPSIS [None]
